FAERS Safety Report 25067815 (Version 1)
Quarter: 2025Q1

REPORT INFORMATION
  Report Type: Spontaneous
  Country: US (occurrence: None)
  Receive Date: 20250311
  Receipt Date: 20250311
  Transmission Date: 20250409
  Serious: Yes (Hospitalization)
  Sender: FDA-CTU
  Company Number: None

PATIENT
  Age: 22 Year
  Sex: Male
  Weight: 73.35 kg

DRUGS (2)
  1. FLUPHENAZINE DECANOATE [Suspect]
     Active Substance: FLUPHENAZINE DECANOATE
     Indication: Mental disorder
     Dates: start: 20250120, end: 20250206
  2. kalanapin [Concomitant]

REACTIONS (6)
  - Pain in extremity [None]
  - Suicidal ideation [None]
  - Weight decreased [None]
  - Fatigue [None]
  - Cachexia [None]
  - Hypophagia [None]

NARRATIVE: CASE EVENT DATE: 20250120
